FAERS Safety Report 24289958 (Version 1)
Quarter: 2024Q3

REPORT INFORMATION
  Report Type: Spontaneous
  Country: NO (occurrence: NO)
  Receive Date: 20240906
  Receipt Date: 20240906
  Transmission Date: 20241017
  Serious: Yes (Other)
  Sender: STRIDES
  Company Number: NO-STRIDES ARCOLAB LIMITED-2024SP011295

PATIENT
  Age: 3 Month

DRUGS (1)
  1. LEVETIRACETAM [Suspect]
     Active Substance: LEVETIRACETAM
     Indication: Product used for unknown indication
     Dosage: UNK
     Route: 063

REACTIONS (2)
  - Growth retardation [Unknown]
  - Exposure via breast milk [Unknown]
